FAERS Safety Report 16848316 (Version 1)
Quarter: 2019Q3

REPORT INFORMATION
  Report Type: Spontaneous
  Country: FR (occurrence: FR)
  Receive Date: 20190925
  Receipt Date: 20190925
  Transmission Date: 20191005
  Serious: Yes (Other)
  Sender: FDA-Public Use
  Company Number: FR-TEVA-2019-FR-1111794

PATIENT
  Age: 36 Year
  Sex: Male

DRUGS (5)
  1. TABAC (POUDRE DE) [Suspect]
     Active Substance: TOBACCO LEAF
     Indication: TOBACCO USER
     Dosage: 10 INDUSTRIAL CIGARETTES A DAY
     Route: 055
  2. DIAZEPAM. [Suspect]
     Active Substance: DIAZEPAM
     Indication: PRODUCT USED FOR UNKNOWN INDICATION
     Dosage: 4 CP OF 10 MG PER DAY.
     Route: 048
  3. CANNABIS [Suspect]
     Active Substance: CANNABIS SATIVA SUBSP. INDICA TOP
     Indication: DRUG ABUSE
     Dosage: 2-3 PIPES A DAY
     Route: 055
  4. ALCOOL [Suspect]
     Active Substance: ALCOHOL
     Indication: ALCOHOL USE
     Dosage: 12 AND 16 US ALCOHOL PER DRINK
     Route: 048
     Dates: start: 2007
  5. MDMA [Suspect]
     Active Substance: MIDOMAFETAMINE
     Indication: DRUG ABUSE
     Dosage: UNINFORMED
     Route: 065

REACTIONS (3)
  - Alcohol abuse [Not Recovered/Not Resolved]
  - Drug dependence [Not Recovered/Not Resolved]
  - Alcohol poisoning [Not Recovered/Not Resolved]

NARRATIVE: CASE EVENT DATE: 2007
